FAERS Safety Report 17453497 (Version 1)
Quarter: 2020Q1

REPORT INFORMATION
  Report Type: Spontaneous
  Country: NL (occurrence: NL)
  Receive Date: 20200224
  Receipt Date: 20200224
  Transmission Date: 20200409
  Serious: Yes (Hospitalization, Other)
  Sender: FDA-Public Use
  Company Number: NL-BAYER-2020-028193

PATIENT
  Age: 45 Year
  Sex: Male

DRUGS (2)
  1. ALEVE [Suspect]
     Active Substance: NAPROXEN SODIUM
     Indication: BACK PAIN
     Dosage: 1 DF, EVERY COUPLE OF DAYS
     Dates: end: 20200207
  2. PARACETAMOL [Concomitant]
     Active Substance: ACETAMINOPHEN

REACTIONS (3)
  - Epistaxis [None]
  - Pulmonary embolism [Recovering/Resolving]
  - Eye haemorrhage [None]

NARRATIVE: CASE EVENT DATE: 202001
